FAERS Safety Report 17262063 (Version 1)
Quarter: 2020Q1

REPORT INFORMATION
  Report Type: Spontaneous
  Country: US (occurrence: US)
  Receive Date: 20200113
  Receipt Date: 20200113
  Transmission Date: 20200409
  Serious: Yes (Life-Threatening, Other)
  Sender: FDA-Public Use
  Company Number: US-BIO PRODUCTS LABORATORY LTD-2078893

PATIENT
  Age: 21 Year
  Sex: Female

DRUGS (3)
  1. GENERIC IVIG [Suspect]
     Active Substance: HUMAN IMMUNOGLOBULIN G
     Indication: ENCEPHALITIS AUTOIMMUNE
     Route: 042
  2. PULSE DOSE METHYLPREDNISOLONE [Concomitant]
  3. ANTI-EPILEPTICS [Concomitant]

REACTIONS (2)
  - Off label use [Recovering/Resolving]
  - Cardiac arrest [Recovering/Resolving]
